FAERS Safety Report 9006120 (Version 1)
Quarter: 2013Q1

REPORT INFORMATION
  Report Type: Spontaneous
  Country: US (occurrence: US)
  Receive Date: 20130109
  Receipt Date: 20130109
  Transmission Date: 20140127
  Serious: Yes (Other)
  Sender: FDA-Public Use
  Company Number: US-009507513-0901USA02175

PATIENT
  Age: 16 Year
  Sex: Male
  Weight: 63.5 kg

DRUGS (2)
  1. SINGULAIR [Suspect]
     Indication: MECHANICAL URTICARIA
     Dosage: 10 MG, DAILY AT THE EVENING
     Route: 048
     Dates: start: 20080709, end: 20080711
  2. SINGULAIR [Suspect]
     Indication: MULTIPLE ALLERGIES

REACTIONS (11)
  - Feeling abnormal [Recovering/Resolving]
  - Abnormal dreams [Recovering/Resolving]
  - Blood pressure increased [Recovering/Resolving]
  - Emotional disorder [Recovering/Resolving]
  - Fear [Recovering/Resolving]
  - Hallucination [Recovering/Resolving]
  - Heart rate increased [Recovering/Resolving]
  - Hypoaesthesia [Recovering/Resolving]
  - Insomnia [Recovering/Resolving]
  - Paraesthesia [Recovering/Resolving]
  - Thinking abnormal [Recovering/Resolving]
